FAERS Safety Report 7991517-1 (Version None)
Quarter: 2011Q4

REPORT INFORMATION
  Report Type: 
  Country: None (occurrence: None)
  Receive Date: 20111219
  Receipt Date: 20111209
  Transmission Date: 20120403
  Serious: Yes (Hospitalization, Other)
  Sender: FDA-Public Use
  Company Number: JP-CELGENEUS-087-50794-11121521

PATIENT
  Sex: Male
  Weight: 39 kg

DRUGS (21)
  1. CEREKINON [Concomitant]
     Dosage: 300 MILLIGRAM
     Route: 048
     Dates: start: 20110411
  2. HUMULIN N [Concomitant]
     Route: 058
     Dates: start: 20110422, end: 20110425
  3. VIDAZA [Suspect]
     Dosage: 75 MILLIGRAM/SQ. METER
     Route: 041
     Dates: start: 20110404, end: 20110412
  4. VIDAZA [Suspect]
     Dosage: 75 MILLIGRAM/SQ. METER
     Route: 041
     Dates: start: 20110510, end: 20110518
  5. VIDAZA [Suspect]
     Dosage: 75 MILLIGRAM/SQ. METER
     Route: 041
     Dates: start: 20110801, end: 20110809
  6. ZOVIRAX [Concomitant]
     Route: 065
     Dates: start: 20110414
  7. HYALEIN [Concomitant]
     Route: 065
     Dates: start: 20110414
  8. NOVOLIN N [Concomitant]
     Route: 058
     Dates: start: 20110426, end: 20110620
  9. GLYCYRON [Concomitant]
     Route: 048
     Dates: start: 20110630, end: 20111030
  10. CEFAZOLIN SODIUM [Concomitant]
     Dosage: 2 GRAM
     Route: 048
     Dates: end: 20110425
  11. FLUCONAZOLE [Concomitant]
     Dosage: 100 MILLIGRAM
     Route: 048
     Dates: start: 20110419, end: 20110425
  12. HUMULIN R [Concomitant]
     Route: 058
     Dates: end: 20110421
  13. MUCOSTA [Concomitant]
     Dosage: 300 MILLIGRAM
     Route: 048
  14. PURSENNID [Concomitant]
     Route: 048
     Dates: start: 20110523
  15. PREDNISOLONE [Concomitant]
     Dosage: 5 MILLIGRAM
     Route: 048
  16. LEVOFLOXACIN HYDRATE [Concomitant]
     Dosage: 300 MILLIGRAM
     Route: 048
     Dates: start: 20110419, end: 20110425
  17. VIDAZA [Suspect]
     Dosage: 75 MILLIGRAM/SQ. METER
     Route: 041
     Dates: start: 20110622, end: 20110630
  18. VIDAZA [Suspect]
     Dosage: 75 MILLIGRAM/SQ. METER
     Route: 041
     Dates: start: 20111107, end: 20111115
  19. EPINASTINE HYDROCHLORIDE [Concomitant]
     Dosage: 20 MILLIGRAM
     Route: 048
  20. LANTUS [Concomitant]
     Route: 058
     Dates: start: 20110621
  21. VIDAZA [Suspect]
     Dosage: 75 MILLIGRAM/SQ. METER
     Route: 041
     Dates: start: 20110906, end: 20110914

REACTIONS (4)
  - PLATELET COUNT DECREASED [None]
  - ASPARTATE AMINOTRANSFERASE INCREASED [None]
  - EYELID OEDEMA [None]
  - ALANINE AMINOTRANSFERASE INCREASED [None]
